FAERS Safety Report 11299812 (Version 1)
Quarter: 2015Q3

REPORT INFORMATION
  Report Type: Spontaneous
  Country: US (occurrence: US)
  Receive Date: 20150722
  Receipt Date: 20150722
  Transmission Date: 20151125
  Serious: No
  Sender: FDA-Public Use
  Company Number: US-ELI_LILLY_AND_COMPANY-US201303008452

PATIENT
  Sex: Female

DRUGS (1)
  1. EVISTA [Suspect]
     Active Substance: RALOXIFENE HYDROCHLORIDE

REACTIONS (5)
  - Pain [Unknown]
  - Body height decreased [Unknown]
  - Wrist fracture [Unknown]
  - Lower limb fracture [Unknown]
  - Osteoporotic fracture [Unknown]
